FAERS Safety Report 13490857 (Version 2)
Quarter: 2017Q3

REPORT INFORMATION
  Report Type: Spontaneous
  Country: DK (occurrence: DK)
  Receive Date: 20170427
  Receipt Date: 20170705
  Transmission Date: 20171127
  Serious: Yes (Other)
  Sender: FDA-Public Use
  Company Number: DK-AMGEN-DNKSP2017063209

PATIENT
  Age: 46 Year
  Sex: Female

DRUGS (3)
  1. ENBREL [Suspect]
     Active Substance: ETANERCEPT
     Dosage: 50 MG, WEEKLY
     Route: 065
     Dates: start: 20131107, end: 20140113
  2. ENBREL [Suspect]
     Active Substance: ETANERCEPT
     Dosage: 50 MG, WEEKLY
     Route: 065
     Dates: start: 20140127, end: 20140311
  3. ENBREL [Suspect]
     Active Substance: ETANERCEPT
     Indication: RHEUMATOID ARTHRITIS
     Dosage: 50 MG, WEEKLY
     Route: 065
     Dates: start: 20131007

REACTIONS (13)
  - Pain in jaw [Unknown]
  - Vulvovaginal mycotic infection [Unknown]
  - Corynebacterium infection [Unknown]
  - Eye disorder [Unknown]
  - Oral fungal infection [Unknown]
  - Hand-foot-and-mouth disease [Unknown]
  - Sinusitis [Unknown]
  - Nasal mucosal ulcer [Unknown]
  - Infection [Unknown]
  - Bone pain [Unknown]
  - Condition aggravated [Unknown]
  - Visual impairment [Unknown]
  - Rheumatoid arthritis [Unknown]

NARRATIVE: CASE EVENT DATE: 20141022
